FAERS Safety Report 15759352 (Version 1)
Quarter: 2018Q4

REPORT INFORMATION
  Report Type: Report from Study
  Country: None (occurrence: AU)
  Receive Date: 20181226
  Receipt Date: 20181226
  Transmission Date: 20190205
  Serious: Yes (Other)
  Sender: FDA-Public Use
  Company Number: AU-ABBVIE-18S-008-2511022-00

PATIENT
  Age: 56 Year
  Sex: Male

DRUGS (1)
  1. DUODOPA [Suspect]
     Active Substance: CARBIDOPA\LEVODOPA
     Indication: PARKINSON^S DISEASE
     Dosage: 100ML GEL CASSETTE?16 HOURLY INFUSION
     Route: 050
     Dates: start: 20160829

REACTIONS (3)
  - Embedded device [Recovering/Resolving]
  - Device issue [Not Recovered/Not Resolved]
  - Stoma site pain [Not Recovered/Not Resolved]

NARRATIVE: CASE EVENT DATE: 20180930
